FAERS Safety Report 23643489 (Version 1)
Quarter: 2024Q1

REPORT INFORMATION
  Report Type: Spontaneous
  Country: US (occurrence: None)
  Receive Date: 20240316
  Receipt Date: 20240316
  Transmission Date: 20240410
  Serious: No
  Sender: FDA-Public Use
  Company Number: None

PATIENT
  Age: 85 Year
  Sex: Female
  Weight: 90 kg

DRUGS (10)
  1. CEFDINIR [Suspect]
     Active Substance: CEFDINIR
     Indication: Cystitis
     Dosage: 1 CAPSULE TWICE A DAY ORAL
     Route: 048
     Dates: start: 20231216, end: 20231218
  2. Lusarten [Concomitant]
  3. ROSUVASTATIN [Concomitant]
     Active Substance: ROSUVASTATIN
  4. Meloxicam Sotalol [Concomitant]
  5. LATANOPROST [Concomitant]
     Active Substance: LATANOPROST
  6. Clobetesol Proprionate [Concomitant]
  7. Dexamethason Elixor [Concomitant]
  8. MINERALS\VITAMINS [Concomitant]
     Active Substance: MINERALS\VITAMINS
  9. Calcium Magnesium Zinc combo [Concomitant]
  10. MAGNESIUM [Concomitant]
     Active Substance: MAGNESIUM

REACTIONS (2)
  - Vision blurred [None]
  - Visual impairment [None]

NARRATIVE: CASE EVENT DATE: 20231216
